FAERS Safety Report 11914707 (Version 1)
Quarter: 2016Q1

REPORT INFORMATION
  Report Type: Spontaneous
  Country: US (occurrence: US)
  Receive Date: 20160113
  Receipt Date: 20160113
  Transmission Date: 20160526
  Serious: No
  Sender: FDA-Public Use
  Company Number: US-OSMOTICA_PHARMACEUTICAL_CORP-POI0573201500046

PATIENT
  Age: 58 Year
  Sex: Female
  Weight: 69.46 kg

DRUGS (5)
  1. TOPROL XL [Concomitant]
     Active Substance: METOPROLOL SUCCINATE
  2. XARELTO [Concomitant]
     Active Substance: RIVAROXABAN
  3. LISINOPRIL. [Concomitant]
     Active Substance: LISINOPRIL
  4. CLONAZEPAM. [Concomitant]
     Active Substance: CLONAZEPAM
  5. NIFEDIPINE ER [Suspect]
     Active Substance: NIFEDIPINE
     Indication: HYPERTENSION
     Dates: start: 201503

REACTIONS (1)
  - Palpitations [Not Recovered/Not Resolved]

NARRATIVE: CASE EVENT DATE: 201503
